FAERS Safety Report 13506569 (Version 1)
Quarter: 2017Q2

REPORT INFORMATION
  Report Type: Spontaneous
  Country: US (occurrence: US)
  Receive Date: 20170502
  Receipt Date: 20170502
  Transmission Date: 20170830
  Serious: No
  Sender: FDA-Public Use
  Company Number: US-ROCHE-1355252

PATIENT
  Sex: Male

DRUGS (6)
  1. LISINOPRIL. [Concomitant]
     Active Substance: LISINOPRIL
     Indication: HYPERTENSION
     Dosage: FOR 5 YEARS
     Route: 065
  2. AMLODIPINE BESYLATE. [Concomitant]
     Active Substance: AMLODIPINE BESYLATE
     Indication: HYPERTENSION
     Route: 065
     Dates: start: 201402
  3. AVASTIN [Suspect]
     Active Substance: BEVACIZUMAB
     Dosage: BOTH EYES
     Route: 065
  4. AMLODIPINE [Concomitant]
     Active Substance: AMLODIPINE BESYLATE
     Route: 065
  5. AVASTIN [Suspect]
     Active Substance: BEVACIZUMAB
     Indication: EYE OEDEMA
     Dosage: LEFT EYE
     Route: 031
     Dates: start: 2013
  6. JANUMET [Concomitant]
     Active Substance: METFORMIN HYDROCHLORIDE\SITAGLIPTIN PHOSPHATE
     Indication: DIABETES MELLITUS
     Dosage: 50-1000 MG
     Route: 065

REACTIONS (10)
  - Eye pain [Unknown]
  - Headache [Not Recovered/Not Resolved]
  - Drug dose omission [Unknown]
  - Neuropathy peripheral [Not Recovered/Not Resolved]
  - Epistaxis [Unknown]
  - Cataract [Not Recovered/Not Resolved]
  - Blood potassium increased [Not Recovered/Not Resolved]
  - Benign neoplasm of thyroid gland [Unknown]
  - Visual impairment [Not Recovered/Not Resolved]
  - Lacrimal disorder [Not Recovered/Not Resolved]

NARRATIVE: CASE EVENT DATE: 2013
